FAERS Safety Report 5619213-6 (Version None)
Quarter: 2008Q1

REPORT INFORMATION
  Report Type: 
  Country: None (occurrence: None)
  Receive Date: 20080205
  Receipt Date: 20080122
  Transmission Date: 20080703
  Serious: Yes (Death)
  Sender: FDA-Public Use
  Company Number: 02100-JPN-07-0017

PATIENT
  Age: 82 Year
  Sex: Male

DRUGS (5)
  1. PLETAL [Suspect]
     Indication: CEREBRAL INFARCTION
     Dosage: 50 MG, BID
     Route: 048
     Dates: start: 20031219, end: 20070520
  2. XANBON (OZAGREL SODIUM) INJECTION [Concomitant]
  3. NICHOLIN-H (CITICOLINE) INJECTION [Concomitant]
  4. GASMOTIN (MOSAPRIDE CITRATE) [Concomitant]
  5. BAYASPIRIN (ACETYLSALICYLIC ACID) TABLET [Concomitant]

REACTIONS (1)
  - CEREBRAL INFARCTION [None]
